FAERS Safety Report 21303600 (Version 1)
Quarter: 2022Q3

REPORT INFORMATION
  Report Type: Spontaneous
  Country: US (occurrence: US)
  Receive Date: 20220907
  Receipt Date: 20220907
  Transmission Date: 20221027
  Serious: No
  Sender: FDA-Public Use
  Company Number: US-INCYTE CORPORATION-2022IN008338

PATIENT

DRUGS (1)
  1. JAKAFI [Suspect]
     Active Substance: RUXOLITINIB
     Indication: Polycythaemia vera
     Dosage: 10 MILLIGRAM, QD
     Route: 048
     Dates: start: 20211118

REACTIONS (8)
  - COVID-19 [Unknown]
  - Dry skin [Unknown]
  - Nail disorder [Unknown]
  - Vertigo [Unknown]
  - Muscular weakness [Unknown]
  - Fall [Unknown]
  - Head injury [Unknown]
  - Nausea [Unknown]
